FAERS Safety Report 22299169 (Version 3)
Quarter: 2023Q2

REPORT INFORMATION
  Report Type: Spontaneous
  Country: US (occurrence: US)
  Receive Date: 20230509
  Receipt Date: 20230615
  Transmission Date: 20230721
  Serious: No
  Sender: FDA-Public Use
  Company Number: US-PFIZER INC-202300182764

PATIENT
  Age: 58 Year
  Sex: Female

DRUGS (1)
  1. PRISTIQ EXTENDED-RELEASE [Suspect]
     Active Substance: DESVENLAFAXINE SUCCINATE
     Dosage: 100 MG

REACTIONS (8)
  - Malaise [Unknown]
  - Mood altered [Unknown]
  - Anger [Recovered/Resolved]
  - Cerebral disorder [Unknown]
  - Feeding disorder [Unknown]
  - Insomnia [Unknown]
  - Headache [Unknown]
  - Feeling abnormal [Unknown]
